FAERS Safety Report 4777412-X (Version None)
Quarter: 2005Q3

REPORT INFORMATION
  Report Type: 
  Country: None (occurrence: None)
  Receive Date: 20050921
  Receipt Date: 20050831
  Transmission Date: 20060218
  Serious: Yes (Hospitalization)
  Sender: FDA-Public Use
  Company Number: USA0509107012

PATIENT
  Age: 65 Year
  Sex: Male

DRUGS (11)
  1. CYMBALTA [Suspect]
     Indication: DEPRESSION
     Dosage: 150 MG DAY
  2. ZYPREXA [Concomitant]
  3. ALPRAZOLAM [Concomitant]
  4. DARVOCET-N 100 [Concomitant]
  5. LEVOXYL [Concomitant]
  6. ZANAFLEX [Concomitant]
  7. KETOPROFEN [Concomitant]
  8. AMBIEN [Concomitant]
  9. AMITRIPTYLINE HCL [Concomitant]
  10. NEXIUM [Concomitant]
  11. ALLOPURINOL [Concomitant]

REACTIONS (4)
  - ASTHENIA [None]
  - CONFUSIONAL STATE [None]
  - HYPOXIA [None]
  - PNEUMONIA [None]
